FAERS Safety Report 14756712 (Version 1)
Quarter: 2018Q2

REPORT INFORMATION
  Report Type: Spontaneous
  Country: US (occurrence: US)
  Receive Date: 20180413
  Receipt Date: 20180413
  Transmission Date: 20180711
  Serious: No
  Sender: FDA-Public Use
  Company Number: US-JNJFOC-20180331857

PATIENT
  Age: 6 Year
  Sex: Male

DRUGS (1)
  1. CHILDRENS TYLENOL [Suspect]
     Active Substance: ACETAMINOPHEN
     Indication: NASOPHARYNGITIS
     Dosage: A SPOON
     Route: 048
     Dates: start: 20180320

REACTIONS (2)
  - Incorrect dose administered [Unknown]
  - Drug administration error [Unknown]

NARRATIVE: CASE EVENT DATE: 20180320
